FAERS Safety Report 6329090-6 (Version None)
Quarter: 2009Q3

REPORT INFORMATION
  Report Type: 
  Country: None (occurrence: None)
  Receive Date: 20090826
  Receipt Date: 20090818
  Transmission Date: 20100115
  Serious: Yes (Other)
  Sender: FDA-Public Use
  Company Number: US-ROCHE-647548

PATIENT
  Sex: Female
  Weight: 52.4 kg

DRUGS (4)
  1. XELODA [Suspect]
     Dosage: REPORTED FREQUENCY: ON DAYS 1 THROUGH 14 OF THE 21 DAY CYCLE.
     Route: 048
  2. XELODA [Suspect]
     Route: 048
     Dates: start: 20090604, end: 20090708
  3. ELOXATIN [Suspect]
     Route: 042
  4. ELOXATIN [Suspect]
     Dosage: ROUTE: IVPB, FREQUENCY: X 1
     Route: 042
     Dates: start: 20090625, end: 20090625

REACTIONS (12)
  - ANXIETY [None]
  - ARTHRALGIA [None]
  - DIARRHOEA [None]
  - DYSPHONIA [None]
  - DYSPNOEA [None]
  - LARYNGOSPASM [None]
  - MUSCLE SPASMS [None]
  - NEUROPATHY PERIPHERAL [None]
  - OEDEMA PERIPHERAL [None]
  - PALMAR-PLANTAR ERYTHRODYSAESTHESIA SYNDROME [None]
  - QUALITY OF LIFE DECREASED [None]
  - RESPIRATION ABNORMAL [None]
